FAERS Safety Report 6754736-8 (Version None)
Quarter: 2010Q2

REPORT INFORMATION
  Report Type: 
  Country: None (occurrence: None)
  Receive Date: 20100603
  Receipt Date: 20100603
  Transmission Date: 20101027
  Serious: Yes (Death, Life-Threatening, Hospitalization, Other)
  Sender: FDA-Public Use
  Company Number: DE-ABBOTT-10P-062-0627958-00

PATIENT
  Sex: Female
  Weight: 58 kg

DRUGS (4)
  1. HUMIRA [Suspect]
     Indication: RHEUMATOID ARTHRITIS
     Route: 058
     Dates: start: 20051101, end: 20091201
  2. ARAVA [Suspect]
     Indication: RHEUMATOID ARTHRITIS
     Route: 048
     Dates: start: 20000101, end: 20091201
  3. PREDNISONE TAB [Concomitant]
     Indication: RHEUMATOID ARTHRITIS
     Dates: end: 20090101
  4. ACTIVASE [Concomitant]
     Indication: THROMBOLYSIS
     Dates: end: 20091001

REACTIONS (17)
  - ASPIRATION [None]
  - BLOOD CREATININE INCREASED [None]
  - C-REACTIVE PROTEIN INCREASED [None]
  - CEREBRAL INFARCTION [None]
  - EPISTAXIS [None]
  - HEMIANOPIA [None]
  - HYPERTENSION [None]
  - ISCHAEMIC STROKE [None]
  - LEUKOCYTOSIS [None]
  - MENTAL DISORDER [None]
  - OXYGEN SATURATION DECREASED [None]
  - PHARYNGEAL HAEMORRHAGE [None]
  - PNEUMONIA [None]
  - RESPIRATORY FAILURE [None]
  - STAPHYLOCOCCAL INFECTION [None]
  - TACHYCARDIA [None]
  - VOMITING [None]
